FAERS Safety Report 5593211-3 (Version None)
Quarter: 2008Q1

REPORT INFORMATION
  Report Type: 
  Country: None (occurrence: None)
  Receive Date: 20080115
  Receipt Date: 20080115
  Transmission Date: 20080703
  Serious: Yes (Other)
  Sender: FDA-Public Use
  Company Number: None

PATIENT
  Age: 48 Year
  Sex: Female
  Weight: 58.9676 kg

DRUGS (2)
  1. AMOXICILLIN 500MG RITE AID [Suspect]
     Indication: ENDOSCOPIC RETROGRADE CHOLANGIOPANCREATOGRAPHY
     Dosage: 500MG  3 TIMES PER DAY  PO
     Route: 048
     Dates: start: 20080111, end: 20080114
  2. AMOXICILLIN 500MG RITE AID [Suspect]
     Indication: PROPHYLAXIS
     Dosage: 500MG  3 TIMES PER DAY  PO
     Route: 048
     Dates: start: 20080111, end: 20080114

REACTIONS (2)
  - NAUSEA [None]
  - STOMACH DISCOMFORT [None]
